FAERS Safety Report 13445192 (Version 2)
Quarter: 2017Q3

REPORT INFORMATION
  Report Type: Spontaneous
  Country: US (occurrence: US)
  Receive Date: 20170414
  Receipt Date: 20170811
  Transmission Date: 20171127
  Serious: Yes (Death, Hospitalization)
  Sender: FDA-Public Use
  Company Number: US-ACTELION-A-US2017-152335

PATIENT
  Age: 28 Year
  Sex: Male
  Weight: 66.21 kg

DRUGS (1)
  1. OPSUMIT [Suspect]
     Active Substance: MACITENTAN
     Indication: PULMONARY ARTERIAL HYPERTENSION
     Dosage: 10 MG, UNK
     Route: 048
     Dates: start: 20160513, end: 20160724

REACTIONS (4)
  - Arthralgia [Fatal]
  - Pain in extremity [Fatal]
  - Back pain [Fatal]
  - Sickle cell anaemia with crisis [Fatal]

NARRATIVE: CASE EVENT DATE: 20160524
